FAERS Safety Report 18334960 (Version 2)
Quarter: 2020Q4

REPORT INFORMATION
  Report Type: Spontaneous
  Country: US (occurrence: US)
  Receive Date: 20201001
  Receipt Date: 20201005
  Transmission Date: 20210113
  Serious: No
  Sender: FDA-Public Use
  Company Number: US-PFIZER INC-2020379036

PATIENT
  Age: 76 Year
  Sex: Female
  Weight: 54.42 kg

DRUGS (2)
  1. GABAPENTIN. [Suspect]
     Active Substance: GABAPENTIN
     Indication: PRURITUS
     Dosage: 100 MG, DAILY (100MG BY MOUTH EVERY DAY)
     Route: 048
     Dates: start: 20200904, end: 20200920
  2. GABAPENTIN. [Suspect]
     Active Substance: GABAPENTIN
     Dosage: UNK
     Dates: start: 20200928, end: 20200928

REACTIONS (5)
  - Pain [Recovering/Resolving]
  - Drug effective for unapproved indication [Unknown]
  - Blister [Recovering/Resolving]
  - Off label use [Unknown]
  - Product use in unapproved indication [Unknown]

NARRATIVE: CASE EVENT DATE: 202009
